FAERS Safety Report 7142527-8 (Version None)
Quarter: 2010Q4

REPORT INFORMATION
  Report Type: 
  Country: None (occurrence: None)
  Receive Date: 20101207
  Receipt Date: 20101126
  Transmission Date: 20110411
  Serious: Yes (Hospitalization)
  Sender: FDA-Public Use
  Company Number: PHHO2010ES17901

PATIENT
  Sex: Female
  Weight: 77 kg

DRUGS (3)
  1. ALISKIREN ALI+TAB+CVR [Suspect]
     Indication: CARDIOVASCULAR DISORDER
     Dosage: CODE NOT BROKEN
     Route: 048
     Dates: start: 20100826, end: 20100906
  2. ALISKIREN ALI+TAB+CVR [Suspect]
     Dosage: NO TREATMENT
     Dates: start: 20100907, end: 20100929
  3. ALISKIREN ALI+TAB+CVR [Suspect]
     Dosage: CODE NOT BROKEN
     Route: 048
     Dates: start: 20100930

REACTIONS (3)
  - ABDOMINAL PAIN [None]
  - CHOLANGITIS [None]
  - DIARRHOEA [None]
